FAERS Safety Report 5247790-6 (Version None)
Quarter: 2007Q1

REPORT INFORMATION
  Report Type: 
  Country: None (occurrence: None)
  Receive Date: 20070227
  Receipt Date: 20070222
  Transmission Date: 20070707
  Serious: Yes (Death)
  Sender: FDA-Public Use
  Company Number: US-JNJFOC-20070205697

PATIENT
  Age: 33 Year
  Sex: Female

DRUGS (2)
  1. DURAGESIC [Suspect]
     Indication: MIGRAINE
     Route: 062
  2. DURAGESIC [Suspect]
     Indication: PAIN
     Route: 062

REACTIONS (2)
  - DEVICE FAILURE [None]
  - DRUG TOXICITY [None]
